FAERS Safety Report 25489932 (Version 1)
Quarter: 2025Q2

REPORT INFORMATION
  Report Type: Other
  Country: CN (occurrence: CN)
  Receive Date: 20250628
  Receipt Date: 20250628
  Transmission Date: 20250716
  Serious: Yes (Hospitalization, Other)
  Sender: Kanchan Healthcare
  Company Number: CN-Kanchan Healthcare INC-2179543

PATIENT
  Age: 38 Year
  Sex: Female

DRUGS (10)
  1. ETHAMBUTOL HYDROCHLORIDE [Suspect]
     Active Substance: ETHAMBUTOL HYDROCHLORIDE
     Indication: Tuberculosis
  2. ISONIAZID [Suspect]
     Active Substance: ISONIAZID
  3. PREDNISONE [Concomitant]
     Active Substance: PREDNISONE
  4. MOXIFLOXACIN [Suspect]
     Active Substance: MOXIFLOXACIN
  5. RIFAPENTINE [Suspect]
     Active Substance: RIFAPENTINE
  6. CYCLOSERINE [Suspect]
     Active Substance: CYCLOSERINE
  7. PROTIONAMIDE [Suspect]
     Active Substance: PROTIONAMIDE
  8. PASINIAZID [Suspect]
     Active Substance: PASINIAZID
  9. PYRAZINAMIDE [Suspect]
     Active Substance: PYRAZINAMIDE
  10. RIFAMPIN [Suspect]
     Active Substance: RIFAMPIN

REACTIONS (3)
  - Nicotinic acid deficiency [Recovered/Resolved]
  - Neuropathy peripheral [Recovered/Resolved]
  - Vitamin B complex deficiency [Recovered/Resolved]
